FAERS Safety Report 5938574-1 (Version None)
Quarter: 2008Q4

REPORT INFORMATION
  Report Type: 
  Country: None (occurrence: None)
  Receive Date: 20081103
  Receipt Date: 20081029
  Transmission Date: 20090506
  Serious: Yes (Life-Threatening, Other)
  Sender: FDA-Public Use
  Company Number: PHHY2008JP07290

PATIENT
  Age: 55 Year
  Sex: Male

DRUGS (12)
  1. VOLTAREN [Suspect]
     Indication: PYREXIA
     Dosage: 50 MG/DAY
     Route: 054
     Dates: start: 20080331, end: 20080331
  2. VOLTAREN [Suspect]
     Indication: NASOPHARYNGITIS
  3. TOMIRON [Suspect]
     Dosage: 300 MG/DAY
     Route: 048
     Dates: start: 20080331, end: 20080331
  4. CLARITHROMYCIN [Suspect]
     Dosage: 400 MG/DAY
     Route: 048
     Dates: start: 20080330, end: 20080330
  5. CONFATANIN [Suspect]
     Dosage: 120 MG/DAY
     Route: 048
     Dates: start: 20080330, end: 20080330
  6. SUCRALFATE [Concomitant]
     Dosage: UNK
     Route: 048
     Dates: start: 20080331, end: 20080331
  7. AZUNOL [Concomitant]
  8. DEXALTIN [Concomitant]
     Route: 048
  9. URSO 250 [Concomitant]
     Route: 048
  10. EPADEL [Concomitant]
     Route: 048
  11. ALBUMIN (HUMAN) [Concomitant]
  12. POLYGAM S/D [Concomitant]

REACTIONS (29)
  - ALANINE AMINOTRANSFERASE INCREASED [None]
  - ASPARTATE AMINOTRANSFERASE INCREASED [None]
  - BLOOD AMYLASE INCREASED [None]
  - BLOOD BILIRUBIN INCREASED [None]
  - BLOOD GLUCOSE INCREASED [None]
  - BLOOD LACTATE DEHYDROGENASE INCREASED [None]
  - BLOOD UREA INCREASED [None]
  - C-REACTIVE PROTEIN INCREASED [None]
  - DIABETES MELLITUS [None]
  - DRUG ERUPTION [None]
  - EOSINOPHIL COUNT DECREASED [None]
  - EYE DISORDER [None]
  - GAMMA-GLUTAMYLTRANSFERASE INCREASED [None]
  - GENERAL PHYSICAL HEALTH DETERIORATION [None]
  - HAEMATOCRIT DECREASED [None]
  - HAEMOGLOBIN DECREASED [None]
  - HEPATIC ENZYME INCREASED [None]
  - HERPES ZOSTER [None]
  - LYMPHOCYTE COUNT DECREASED [None]
  - MYCOPLASMA SEROLOGY POSITIVE [None]
  - PARENTERAL NUTRITION [None]
  - PLATELET COUNT DECREASED [None]
  - PNEUMONIA [None]
  - PROTEIN URINE PRESENT [None]
  - PROTHROMBIN TIME PROLONGED [None]
  - PSEUDOMEMBRANOUS COLITIS [None]
  - RED BLOOD CELL COUNT DECREASED [None]
  - STAPHYLOCOCCAL INFECTION [None]
  - TOXIC EPIDERMAL NECROLYSIS [None]
